FAERS Safety Report 5359046-1 (Version None)
Quarter: 2007Q2

REPORT INFORMATION
  Report Type: 
  Country: None (occurrence: None)
  Receive Date: 20070530
  Receipt Date: 20070206
  Transmission Date: 20071010
  Serious: No
  Sender: FDA-Public Use
  Company Number: 2007PV029629

PATIENT
  Sex: Female

DRUGS (4)
  1. BYETTA [Suspect]
     Indication: DIABETES MELLITUS NON-INSULIN-DEPENDENT
     Dosage: 10 MCG; 5 MCG : BID ;SC
     Route: 058
     Dates: start: 20060901, end: 20061001
  2. BYETTA [Suspect]
     Indication: DIABETES MELLITUS NON-INSULIN-DEPENDENT
     Dosage: 10 MCG; 5 MCG : BID ;SC
     Route: 058
     Dates: start: 20061001, end: 20070101
  3. LANTUS [Concomitant]
  4. NEXIUM [Concomitant]

REACTIONS (4)
  - BLOOD GLUCOSE INCREASED [None]
  - DYSPEPSIA [None]
  - FATIGUE [None]
  - FEELING JITTERY [None]
